FAERS Safety Report 8890191 (Version 1)
Quarter: 2012Q4

REPORT INFORMATION
  Report Type: 
  Country: CA (occurrence: CA)
  Receive Date: 20121106
  Receipt Date: 20121106
  Transmission Date: 20130627
  Serious: Yes (Death, Hospitalization, Other)
  Sender: FDA-Public Use
  Company Number: PHMT2005CA00876

PATIENT
  Sex: Female

DRUGS (8)
  1. SANDOSTATIN LAR [Suspect]
     Indication: VIPOMA
     Dosage: 20 mg, every 4 weeks
     Dates: start: 20040915
  2. SANDOSTATIN LAR [Suspect]
     Dosage: 30 mg, UNK
  3. CALCIUM [Concomitant]
  4. COLACE [Concomitant]
  5. DETROL [Concomitant]
  6. FERROUS GLUCONATE [Concomitant]
  7. METOPROLOL [Concomitant]
  8. RANITIDINE [Concomitant]

REACTIONS (7)
  - Renal failure [Fatal]
  - Blood glucose decreased [Unknown]
  - Dyspnoea [Unknown]
  - Oedema peripheral [Unknown]
  - Hypertension [Unknown]
  - Hypoglycaemia [Unknown]
  - Asthenia [Unknown]
